FAERS Safety Report 7733597-4 (Version None)
Quarter: 2011Q3

REPORT INFORMATION
  Report Type: 
  Country: None (occurrence: None)
  Receive Date: 20110907
  Receipt Date: 20110829
  Transmission Date: 20111222
  Serious: Yes (Other)
  Sender: FDA-Public Use
  Company Number: JP-JNJFOC-20100605213

PATIENT
  Sex: Female
  Weight: 65 kg

DRUGS (12)
  1. DOXORUBICIN HCL [Suspect]
     Dosage: CYCLE 2
     Route: 042
     Dates: start: 20090901, end: 20090901
  2. CLARITIN [Concomitant]
     Indication: XERODERMA
     Route: 048
     Dates: start: 20080402
  3. FAMOTIDINE [Concomitant]
     Indication: GASTRITIS
     Route: 048
     Dates: start: 20090512
  4. PYDOXAL [Concomitant]
     Indication: STOMATITIS
     Route: 048
     Dates: start: 20090929, end: 20091016
  5. KERATINAMIN [Concomitant]
     Indication: XERODERMA
     Route: 061
     Dates: start: 20081217
  6. PRIMPERAN TAB [Concomitant]
     Indication: PROPHYLAXIS
     Route: 048
     Dates: start: 20071212
  7. DEPAS [Concomitant]
     Indication: INSOMNIA
     Route: 048
     Dates: start: 20080903
  8. DOXORUBICIN HCL [Suspect]
     Route: 042
     Dates: start: 20090728, end: 20090728
  9. DOXORUBICIN HCL [Suspect]
     Dosage: CYCLE 1
     Route: 042
     Dates: start: 20090630, end: 20090630
  10. DEXALTIN [Concomitant]
     Indication: STOMATITIS
     Route: 049
     Dates: start: 20090929, end: 20091026
  11. DOXORUBICIN HCL [Suspect]
     Indication: OVARIAN CANCER RECURRENT
     Dosage: CYCLE 3
     Route: 042
     Dates: start: 20090929, end: 20090929
  12. AFTACH [Concomitant]
     Indication: STOMATITIS
     Route: 049
     Dates: start: 20090929, end: 20091026

REACTIONS (2)
  - ANAL EROSION [None]
  - STOMATITIS [None]
